FAERS Safety Report 25389480 (Version 1)
Quarter: 2025Q2

REPORT INFORMATION
  Report Type: Spontaneous
  Country: CA (occurrence: None)
  Receive Date: 20250603
  Receipt Date: 20250603
  Transmission Date: 20250716
  Serious: Yes (Hospitalization, Other)
  Sender: ORION
  Company Number: CA-PFIZER INC-202500112288

PATIENT
  Age: 53 Year

DRUGS (5)
  1. METHOTREXATE [Suspect]
     Active Substance: METHOTREXATE
     Indication: Product used for unknown indication
     Dates: start: 20230131, end: 20230301
  2. METHOTREXATE [Suspect]
     Active Substance: METHOTREXATE
     Dates: start: 20231116, end: 20231213
  3. ARAVA [Concomitant]
     Active Substance: LEFLUNOMIDE
  4. PLAQUENIL [Concomitant]
     Active Substance: HYDROXYCHLOROQUINE SULFATE
  5. PREDNISONE [Concomitant]
     Active Substance: PREDNISONE

REACTIONS (4)
  - Leukopenia [Unknown]
  - Lethargy [Unknown]
  - Mouth ulceration [Unknown]
  - Chest pain [Unknown]

NARRATIVE: CASE EVENT DATE: 20230101
